FAERS Safety Report 11159625 (Version 1)
Quarter: 2015Q2

REPORT INFORMATION
  Report Type: Report from Study
  Country: US (occurrence: US)
  Receive Date: 20150603
  Receipt Date: 20150603
  Transmission Date: 20150821
  Serious: No
  Sender: FDA-Public Use
  Company Number: US-ABBVIE-14P-163-1250663-00

PATIENT
  Sex: Female

DRUGS (2)
  1. MARINOL [Suspect]
     Active Substance: DRONABINOL
     Indication: PRODUCT USED FOR UNKNOWN INDICATION
     Route: 048
     Dates: end: 201404
  2. MARINOL [Suspect]
     Active Substance: DRONABINOL
     Route: 048
     Dates: start: 20140429

REACTIONS (1)
  - Drug ineffective [Not Recovered/Not Resolved]
